FAERS Safety Report 4832017-7 (Version None)
Quarter: 2005Q4

REPORT INFORMATION
  Report Type: 
  Country: None (occurrence: None)
  Receive Date: 20051116
  Receipt Date: 20051110
  Transmission Date: 20060501
  Serious: Yes (Death)
  Sender: FDA-Public Use
  Company Number: 05H-078-0303476-00

PATIENT
  Sex: Male

DRUGS (1)
  1. HALOTHANE [Suspect]
     Indication: GENERAL ANAESTHESIA

REACTIONS (5)
  - ANAESTHETIC COMPLICATION [None]
  - HEPATIC ENCEPHALOPATHY [None]
  - HEPATIC FAILURE [None]
  - HEPATITIS FULMINANT [None]
  - RENAL FAILURE ACUTE [None]
